FAERS Safety Report 21254503 (Version 1)
Quarter: 2022Q3

REPORT INFORMATION
  Report Type: Report from Study
  Country: US (occurrence: US)
  Receive Date: 20220825
  Receipt Date: 20220825
  Transmission Date: 20221027
  Serious: Yes (Other)
  Sender: FDA-Public Use
  Company Number: US-ABBVIE-22K-163-4514762-00

PATIENT
  Sex: Male

DRUGS (1)
  1. RINVOQ [Suspect]
     Active Substance: UPADACITINIB
     Indication: Product used for unknown indication
     Route: 048

REACTIONS (9)
  - Peripheral vein occlusion [Not Recovered/Not Resolved]
  - Cardiac disorder [Recovered/Resolved]
  - Renal failure [Not Recovered/Not Resolved]
  - Smooth muscle antibody positive [Not Recovered/Not Resolved]
  - Liver disorder [Not Recovered/Not Resolved]
  - Thrombosis [Not Recovered/Not Resolved]
  - Pulmonary embolism [Recovered/Resolved]
  - White blood cell count decreased [Not Recovered/Not Resolved]
  - Herpes zoster [Recovered/Resolved]
